FAERS Safety Report 4302554-2 (Version None)
Quarter: 2004Q1

REPORT INFORMATION
  Report Type: 
  Country: None (occurrence: None)
  Receive Date: 20040217
  Receipt Date: 20030604
  Transmission Date: 20041129
  Serious: Yes (Death)
  Sender: FDA-Public Use
  Company Number: 2003162810US

PATIENT
  Sex: 0

DRUGS (2)
  1. CYTOTEC [Suspect]
     Indication: LABOUR INDUCTION
     Dosage: SINGLE, VAGINAL
     Route: 067
  2. CERVIDIL (GEMEPROST) [Suspect]
     Indication: LABOUR INDUCTION
     Dosage: SINGLE

REACTIONS (1)
  - DEATH [None]
